FAERS Safety Report 25775471 (Version 1)
Quarter: 2025Q3

REPORT INFORMATION
  Report Type: Other
  Country: CA (occurrence: CA)
  Receive Date: 20250909
  Receipt Date: 20250909
  Transmission Date: 20251021
  Serious: Yes (Other)
  Sender: APOTEX
  Company Number: CA-PGRTD-E2B_08012923

PATIENT
  Age: 1 Year
  Sex: Female

DRUGS (35)
  1. ACETAMINOPHEN [Suspect]
     Active Substance: ACETAMINOPHEN
     Indication: Pyrexia
     Route: 065
  2. ACETAMINOPHEN [Suspect]
     Active Substance: ACETAMINOPHEN
     Indication: Illness
  3. AMLODIPINE BESYLATE [Concomitant]
     Active Substance: AMLODIPINE BESYLATE
     Indication: Product used for unknown indication
     Route: 065
  4. CLOBETASOL [Concomitant]
     Active Substance: CLOBETASOL
     Indication: Blister
     Route: 065
  5. DOXEPIN HYDROCHLORIDE [Concomitant]
     Active Substance: DOXEPIN HYDROCHLORIDE
     Indication: Blister
     Route: 065
  6. DOXEPIN HYDROCHLORIDE [Concomitant]
     Active Substance: DOXEPIN HYDROCHLORIDE
     Indication: Pruritus
     Route: 048
  7. ENALAPRIL [Concomitant]
     Active Substance: ENALAPRIL
     Indication: Product used for unknown indication
     Route: 065
  8. HYDROXYZINE [Concomitant]
     Active Substance: HYDROXYZINE HYDROCHLORIDE
     Indication: Pruritus
     Route: 065
  9. HYDROXYZINE [Concomitant]
     Active Substance: HYDROXYZINE HYDROCHLORIDE
     Indication: Blister
     Route: 048
  10. PREDNISONE [Concomitant]
     Active Substance: PREDNISONE
     Indication: Linear IgA disease
     Route: 065
  11. PREDNISONE [Concomitant]
     Active Substance: PREDNISONE
     Indication: Immunosuppression
     Route: 065
  12. RUPATADINE [Concomitant]
     Active Substance: RUPATADINE
     Indication: Pruritus
     Route: 048
  13. RUPATADINE [Concomitant]
     Active Substance: RUPATADINE
     Indication: Blister
     Route: 065
  14. TACROLIMUS [Concomitant]
     Active Substance: TACROLIMUS
     Indication: Wound
     Route: 065
  15. SULFAMETHOXAZOLE\TRIMETHOPRIM [Concomitant]
     Active Substance: SULFAMETHOXAZOLE\TRIMETHOPRIM
     Indication: Pneumocystis jirovecii pneumonia
     Route: 065
  16. VANCOMYCIN [Concomitant]
     Active Substance: VANCOMYCIN
     Indication: Rash erythematous
     Route: 065
  17. VANCOMYCIN [Concomitant]
     Active Substance: VANCOMYCIN
     Indication: Dermatitis bullous
     Route: 065
  18. ASPIRIN [Concomitant]
     Active Substance: ASPIRIN
     Indication: Product used for unknown indication
     Route: 065
  19. BETAMETHASONE VALERATE [Concomitant]
     Active Substance: BETAMETHASONE VALERATE
     Indication: Dermatitis bullous
     Route: 065
  20. CEFAZOLIN SODIUM [Concomitant]
     Active Substance: CEFAZOLIN SODIUM
     Indication: Dermatitis bullous
     Route: 065
  21. CEFAZOLIN SODIUM [Concomitant]
     Active Substance: CEFAZOLIN SODIUM
     Indication: Rash erythematous
     Route: 065
  22. DAPSONE [Concomitant]
     Active Substance: DAPSONE
     Indication: Pruritus
     Route: 065
  23. DAPSONE [Concomitant]
     Active Substance: DAPSONE
     Indication: Linear IgA disease
     Route: 065
  24. DAPSONE [Concomitant]
     Active Substance: DAPSONE
     Route: 061
  25. DAPSONE [Concomitant]
     Active Substance: DAPSONE
     Route: 065
  26. DAPSONE [Concomitant]
     Active Substance: DAPSONE
     Route: 065
  27. FLOVENT [Concomitant]
     Active Substance: FLUTICASONE PROPIONATE
     Indication: Wound
     Route: 065
  28. MEROPENEM [Concomitant]
     Active Substance: MEROPENEM
     Indication: Urinary tract infection
     Route: 065
  29. METHYLENE BLUE [Concomitant]
     Active Substance: METHYLENE BLUE
     Indication: Methaemoglobinaemia
     Route: 065
  30. METHYLPREDNISOLONE ACETATE [Concomitant]
     Active Substance: METHYLPREDNISOLONE ACETATE
     Indication: Methaemoglobinaemia
     Route: 065
  31. MUPIROCIN [Concomitant]
     Active Substance: MUPIROCIN
     Indication: Ulcer
     Route: 065
  32. OMALIZUMAB [Concomitant]
     Active Substance: OMALIZUMAB
     Indication: Pruritus
     Route: 065
  33. PIPERACILLIN SODIUM\TAZOBACTAM SODIUM [Concomitant]
     Active Substance: PIPERACILLIN SODIUM\TAZOBACTAM SODIUM
     Indication: Dermatitis bullous
     Route: 065
  34. PIPERACILLIN SODIUM\TAZOBACTAM SODIUM [Concomitant]
     Active Substance: PIPERACILLIN SODIUM\TAZOBACTAM SODIUM
     Indication: Rash erythematous
     Route: 065
  35. RITUXIMAB [Concomitant]
     Active Substance: RITUXIMAB
     Indication: Blister
     Route: 065

REACTIONS (2)
  - Linear IgA disease [Recovering/Resolving]
  - Condition aggravated [Recovering/Resolving]
